FAERS Safety Report 9009282 (Version 3)
Quarter: 2013Q1

REPORT INFORMATION
  Report Type: Spontaneous
  Country: JP (occurrence: JP)
  Receive Date: 20130111
  Receipt Date: 20130207
  Transmission Date: 20140127
  Serious: Yes (Other)
  Sender: FDA-Public Use
  Company Number: JP-GLAXOSMITHKLINE-B0858043A

PATIENT
  Sex: Female

DRUGS (10)
  1. GABAPENTIN ENACARBIL [Suspect]
     Indication: RESTLESS LEGS SYNDROME
     Dosage: 300MG PER DAY
     Route: 048
     Dates: start: 201211
  2. SODIUM RABEPRAZOLE [Concomitant]
     Route: 065
  3. TOFISOPAM [Concomitant]
     Route: 065
  4. FLUTAZOLAM [Concomitant]
     Route: 048
  5. ACLATONIUM NAPADISYLATE [Concomitant]
     Route: 065
  6. AMLODIPINE [Concomitant]
     Route: 048
  7. CRESTOR [Concomitant]
     Route: 065
  8. ONEALFA [Concomitant]
     Route: 048
  9. LOXONIN [Concomitant]
     Route: 048
  10. METHYLCOBAL [Concomitant]
     Route: 048

REACTIONS (2)
  - Arrhythmia [Recovering/Resolving]
  - Palpitations [Recovering/Resolving]
